FAERS Safety Report 4293291-1 (Version None)
Quarter: 2004Q1

REPORT INFORMATION
  Report Type: 
  Country: None (occurrence: None)
  Receive Date: 20040126
  Receipt Date: 20031112
  Transmission Date: 20041129
  Serious: No
  Sender: FDA-Public Use
  Company Number: USA031050738

PATIENT
  Age: 78 Year
  Sex: Female
  Weight: 57 kg

DRUGS (5)
  1. FORTEO [Suspect]
     Indication: OSTEOPOROSIS
     Dosage: 20 UG/DAY
     Dates: start: 20031022
  2. ISOPTIN (VERPAMIL HYDROCHLORIDE) [Concomitant]
  3. CLONIDINE [Concomitant]
  4. LIPITOR [Concomitant]
  5. LASIX [Concomitant]

REACTIONS (2)
  - FEELING HOT [None]
  - PARAESTHESIA [None]
